FAERS Safety Report 5588224-1 (Version None)
Quarter: 2008Q1

REPORT INFORMATION
  Report Type: 
  Country: None (occurrence: None)
  Receive Date: 20080108
  Receipt Date: 20071224
  Transmission Date: 20080703
  Serious: Yes (Other)
  Sender: FDA-Public Use
  Company Number: ADE2007-0094

PATIENT
  Age: 25 Year
  Sex: Female

DRUGS (2)
  1. SERTRALINE HCL [Suspect]
     Dosage: 100 MG
  2. IMPLANON [Suspect]
     Indication: CONTRACEPTION

REACTIONS (2)
  - ECTOPIC PREGNANCY [None]
  - PREGNANCY WITH IMPLANT CONTRACEPTIVE [None]
